FAERS Safety Report 7491808-7 (Version None)
Quarter: 2011Q2

REPORT INFORMATION
  Report Type: 
  Country: None (occurrence: None)
  Receive Date: 20110519
  Receipt Date: 20110509
  Transmission Date: 20111010
  Serious: Yes (Death, Hospitalization, Disabling, Other)
  Sender: FDA-Public Use
  Company Number: US-MERCK-1001USA00055

PATIENT
  Age: 71 Year
  Sex: Male

DRUGS (9)
  1. METOCLOPRAMIDE HYDROCHLORIDE [Concomitant]
     Route: 065
  2. FOSAMAX [Suspect]
     Route: 048
     Dates: start: 20080201, end: 20091229
  3. WARFARIN [Concomitant]
     Route: 065
     Dates: start: 20030101
  4. VIAGRA [Concomitant]
     Indication: ERECTILE DYSFUNCTION
     Route: 065
     Dates: start: 20040101, end: 20090101
  5. VERAPAMIL EXTENDED-RELEASE [Concomitant]
     Route: 048
     Dates: start: 20030101
  6. ALBUTEROL [Concomitant]
     Route: 065
  7. FUROSEMIDE [Concomitant]
     Route: 065
  8. FOSAMAX [Suspect]
     Indication: OSTEOPOROSIS
     Route: 048
     Dates: start: 20050920, end: 20080201
  9. NITROGLYCERIN [Concomitant]
     Indication: CHEST PAIN
     Route: 065
     Dates: start: 20000101, end: 20090101

REACTIONS (72)
  - COR PULMONALE [None]
  - CONTUSION [None]
  - HYPOXIA [None]
  - SOMNOLENCE [None]
  - ABSCESS ORAL [None]
  - URINARY TRACT INFECTION [None]
  - HAEMATURIA [None]
  - AZOTAEMIA [None]
  - HEPATIC LESION [None]
  - ATRIAL FIBRILLATION [None]
  - STAPHYLOCOCCAL SEPSIS [None]
  - IMPAIRED SELF-CARE [None]
  - CARDIAC FAILURE CONGESTIVE [None]
  - HYPERKALAEMIA [None]
  - GASTRITIS EROSIVE [None]
  - SYNCOPE [None]
  - VARICES OESOPHAGEAL [None]
  - POLYARTHRITIS [None]
  - DRY SKIN [None]
  - CARDIAC DISORDER [None]
  - FEMUR FRACTURE [None]
  - ANAEMIA [None]
  - DRUG HYPERSENSITIVITY [None]
  - DIVERTICULUM [None]
  - PORTAL HYPERTENSIVE GASTROPATHY [None]
  - TRAUMATIC BRAIN INJURY [None]
  - HYPONATRAEMIA [None]
  - RENAL FAILURE ACUTE [None]
  - TOOTHACHE [None]
  - ARTERIOSCLEROSIS [None]
  - ANAEMIA POSTOPERATIVE [None]
  - CELLULITIS [None]
  - HYPOTENSION [None]
  - ARTHROPATHY [None]
  - LACERATION [None]
  - ORTHOSTATIC HYPOTENSION [None]
  - ASTHENIA [None]
  - LOSS OF CONSCIOUSNESS [None]
  - ENCEPHALOPATHY [None]
  - BRAIN NATRIURETIC PEPTIDE [None]
  - OEDEMA PERIPHERAL [None]
  - BACTERIAL INFECTION [None]
  - DYSPNOEA EXERTIONAL [None]
  - TOXICITY TO VARIOUS AGENTS [None]
  - BUNDLE BRANCH BLOCK [None]
  - DEAFNESS BILATERAL [None]
  - FALL [None]
  - TACHYCARDIA [None]
  - VENOUS INSUFFICIENCY [None]
  - PEPTIC ULCER [None]
  - TOOTH DISORDER [None]
  - PAIN [None]
  - CARPAL TUNNEL SYNDROME [None]
  - ANTIDIURETIC HORMONE ABNORMALITY [None]
  - ATAXIA [None]
  - CARDIAC FAILURE [None]
  - OCCULT BLOOD [None]
  - DIARRHOEA [None]
  - WEIGHT INCREASED [None]
  - POST PROCEDURAL HAEMORRHAGE [None]
  - POLYP COLORECTAL [None]
  - POLYP [None]
  - LOW TURNOVER OSTEOPATHY [None]
  - HEAD INJURY [None]
  - CHOLECYSTITIS [None]
  - HIATUS HERNIA [None]
  - PANCREATITIS [None]
  - OSTEOARTHRITIS [None]
  - PULMONARY HYPERTENSION [None]
  - TENDONITIS [None]
  - SLEEP APNOEA SYNDROME [None]
  - CHEST DISCOMFORT [None]
